FAERS Safety Report 6649612-5 (Version None)
Quarter: 2010Q1

REPORT INFORMATION
  Report Type: 
  Country: None (occurrence: None)
  Receive Date: 20100324
  Receipt Date: 20100324
  Transmission Date: 20100710
  Serious: No
  Sender: FDA-Public Use
  Company Number: None

PATIENT
  Sex: Male
  Weight: 113.3993 kg

DRUGS (2)
  1. IMDUR [Suspect]
     Indication: ANGINA PECTORIS
     Dosage: 1 50 MG TABLET ONCE A DAY PO
     Route: 048
     Dates: start: 20100316, end: 20100322
  2. IMDUR [Suspect]
     Indication: PROPHYLAXIS
     Dosage: 1 50 MG TABLET ONCE A DAY PO
     Route: 048
     Dates: start: 20100316, end: 20100322

REACTIONS (9)
  - DIZZINESS [None]
  - DRUG HYPERSENSITIVITY [None]
  - DYSPHAGIA [None]
  - DYSPNOEA [None]
  - PALPITATIONS [None]
  - PHARYNGEAL OEDEMA [None]
  - PRURITUS [None]
  - URTICARIA [None]
  - VISION BLURRED [None]
